FAERS Safety Report 6013716-0 (Version None)
Quarter: 2008Q4

REPORT INFORMATION
  Report Type: 
  Country: None (occurrence: None)
  Receive Date: 20081219
  Receipt Date: 20081216
  Transmission Date: 20090506
  Serious: Yes (Hospitalization)
  Sender: FDA-Public Use
  Company Number: A0760966A

PATIENT
  Age: 54 Year
  Sex: Female
  Weight: 82.7 kg

DRUGS (5)
  1. LAPATINIB [Suspect]
     Indication: BREAST CANCER
     Route: 048
  2. PACLITAXEL [Suspect]
     Indication: BREAST CANCER
     Dosage: 80MGM2 CYCLIC
     Route: 042
  3. DOXORUBICIN HCL [Suspect]
     Indication: BREAST CANCER
     Dosage: 60MGM2 CYCLIC
     Route: 042
  4. CYCLOPHOSPHAMIDE [Suspect]
     Indication: BREAST CANCER
     Dosage: 600MGM2 CYCLIC
     Route: 042
  5. TRASTUZUMAB [Suspect]
     Indication: BREAST CANCER
     Route: 042

REACTIONS (2)
  - INFECTION [None]
  - PYREXIA [None]
